FAERS Safety Report 24040258 (Version 1)
Quarter: 2024Q3

REPORT INFORMATION
  Report Type: Report from Study
  Country: US (occurrence: US)
  Receive Date: 20240702
  Receipt Date: 20240702
  Transmission Date: 20241016
  Serious: Yes (Life-Threatening, Hospitalization, Other)
  Sender: PFIZER
  Company Number: US-PFIZER INC-202400203365

PATIENT
  Age: 53 Month
  Sex: Female

DRUGS (4)
  1. IRINOTECAN HYDROCHLORIDE [Suspect]
     Active Substance: IRINOTECAN HYDROCHLORIDE
     Indication: Medulloblastoma recurrent
     Dosage: 125 MG/M2/DOSE, CYCLIC, DAYS 1, 8,  4 CYCLES (EACH CYCLE IS 28 DAYS)
     Route: 042
  2. ETOPOSIDE [Suspect]
     Active Substance: ETOPOSIDE
     Indication: Medulloblastoma recurrent
     Dosage: 50 MG/M2/DOSE, 1X/DAY , QDAY ON DAYS 1-7, CYCLIC, 4 CYCLES (EACH CYCLE IS 28 DAYS)
     Route: 048
  3. CYCLOPHOSPHAMIDE [Suspect]
     Active Substance: CYCLOPHOSPHAMIDE
     Indication: Medulloblastoma recurrent
     Dosage: 1500 MG/M2/DOSE, CYCLIC, DAYS 1, 2, 4 CYCLES (EACH CYCLE IS 28 DAYS)
     Route: 042
  4. TEMOZOLOMIDE [Suspect]
     Active Substance: TEMOZOLOMIDE
     Indication: Medulloblastoma recurrent
     Dosage: 150 MG/M2/DOSE, 1X/DAY,  QDAY ON DAYS 1-5,CYCLIC, 4 CYCLES (EACH CYCLE IS 28 DAYS)
     Route: 048

REACTIONS (3)
  - Septic shock [Unknown]
  - Febrile neutropenia [Unknown]
  - Myelosuppression [Unknown]
